FAERS Safety Report 24652513 (Version 1)
Quarter: 2024Q4

REPORT INFORMATION
  Report Type: Spontaneous
  Country: US (occurrence: None)
  Receive Date: 20241122
  Receipt Date: 20241122
  Transmission Date: 20250115
  Serious: Yes (Hospitalization)
  Sender: Public
  Company Number: None

PATIENT
  Age: 57 Year
  Sex: Female
  Weight: 70.1 kg

DRUGS (2)
  1. SPRYCEL [Suspect]
     Active Substance: DASATINIB
     Dosage: FREQUENCY : TOTAL;?
     Dates: start: 20240304, end: 20241106
  2. VinCRiStine sulfate 2MD [Concomitant]

REACTIONS (3)
  - COVID-19 [None]
  - Pulmonary hypertension [None]
  - Cardiac failure [None]

NARRATIVE: CASE EVENT DATE: 20241107
